FAERS Safety Report 17120047 (Version 6)
Quarter: 2020Q2

REPORT INFORMATION
  Report Type: Spontaneous
  Country: PT (occurrence: PT)
  Receive Date: 20191206
  Receipt Date: 20200623
  Transmission Date: 20200713
  Serious: Yes (Life-Threatening, Hospitalization, Other)
  Sender: FDA-Public Use
  Company Number: NVSC2019PT057928

PATIENT
  Age: 67 Year
  Sex: Female

DRUGS (4)
  1. INSULIN [Concomitant]
     Active Substance: INSULIN NOS
     Route: 065
  2. METFORMIN [Suspect]
     Active Substance: METFORMIN HYDROCHLORIDE
     Route: 048
  3. METFORMIN [Suspect]
     Active Substance: METFORMIN HYDROCHLORIDE
     Indication: TYPE 2 DIABETES MELLITUS
     Dosage: 1000 MG, QD
     Route: 048
  4. INSULIN [Concomitant]
     Active Substance: INSULIN NOS
     Indication: TYPE 2 DIABETES MELLITUS
     Dosage: 1000 MG, QD
     Route: 048

REACTIONS (8)
  - Gastroenteritis viral [Unknown]
  - Renal impairment [Recovered/Resolved]
  - Nausea [Recovered/Resolved]
  - Dehydration [Recovered/Resolved]
  - Vomiting [Recovered/Resolved]
  - Oliguria [Recovered/Resolved]
  - Lactic acidosis [Recovered/Resolved]
  - Renal failure [Recovered/Resolved]
